FAERS Safety Report 9565874 (Version 3)
Quarter: 2014Q1

REPORT INFORMATION
  Report Type: Spontaneous
  Country: US (occurrence: US)
  Receive Date: 20130930
  Receipt Date: 20140217
  Transmission Date: 20141002
  Serious: Yes (Other)
  Sender: FDA-Public Use
  Company Number: US-PFIZER INC-2013278662

PATIENT
  Age: 74 Year
  Sex: Female
  Weight: 61.22 kg

DRUGS (6)
  1. LIPITOR [Suspect]
     Dosage: 10 MG, DAILY
  2. GLUCOTROL [Suspect]
     Dosage: 10 MG, DAILY
  3. PROCARDIA XL [Suspect]
     Dosage: 30 MG, DAILY
  4. PROTONIX [Suspect]
     Dosage: 40 MG, DAILY
  5. ACCUPRIL [Suspect]
     Dosage: 10 MG, DAILY
  6. COUMADIN [Suspect]
     Dosage: TWO AND A HALF TABLET OF 5 MG DAILY

REACTIONS (3)
  - Cerebrovascular accident [Unknown]
  - Cardiac disorder [Unknown]
  - Drug ineffective [Unknown]
